FAERS Safety Report 7656045-1 (Version None)
Quarter: 2011Q3

REPORT INFORMATION
  Report Type: 
  Country: None (occurrence: None)
  Receive Date: 20110804
  Receipt Date: 20110720
  Transmission Date: 20111222
  Serious: No
  Sender: FDA-Public Use
  Company Number: US-ELI_LILLY_AND_COMPANY-US201005005772

PATIENT
  Age: 77 Year
  Sex: Female
  Weight: 68.481 kg

DRUGS (4)
  1. FOSAMAX [Concomitant]
     Dosage: UNK
     Dates: start: 20000101
  2. FORTEO [Suspect]
     Indication: OSTEOPOROSIS
     Dosage: 20 UG, QD
     Route: 058
     Dates: start: 20091120
  3. CALCIUM ACETATE [Concomitant]
     Dosage: UNK, QD
  4. FORTEO [Suspect]
     Dosage: 20 UG, QD
     Route: 058

REACTIONS (3)
  - CONSTIPATION [None]
  - FATIGUE [None]
  - TRACHEAL DISORDER [None]
